FAERS Safety Report 8601222-6 (Version None)
Quarter: 2012Q3

REPORT INFORMATION
  Report Type: 
  Country: None (occurrence: None)
  Receive Date: 20120817
  Receipt Date: 20120809
  Transmission Date: 20120928
  Serious: Yes (Other)
  Sender: FDA-Public Use
  Company Number: PHHY2010JP84135

PATIENT
  Sex: Male

DRUGS (18)
  1. CLOZARIL [Suspect]
     Dosage: 75 MG, UNK
     Route: 048
     Dates: start: 20101110, end: 20101112
  2. CLOZARIL [Suspect]
     Dosage: 175 MG, UNK
     Route: 048
     Dates: start: 20101119, end: 20101123
  3. FLUNITRAZEPAM [Concomitant]
     Dosage: 2 MG, UNK
     Route: 048
     Dates: end: 20110203
  4. ZYPREXA [Concomitant]
     Indication: SCHIZOPHRENIA, UNDIFFERENTIATED TYPE
     Dosage: 20 MG, UNK
     Route: 048
     Dates: start: 20101103, end: 20101124
  5. SILECE [Concomitant]
     Indication: SCHIZOPHRENIA, UNDIFFERENTIATED TYPE
     Dosage: 1 MG
     Route: 048
     Dates: start: 20101103
  6. CLOZARIL [Suspect]
     Indication: SCHIZOPHRENIA, UNDIFFERENTIATED TYPE
     Dosage: 12.5 MG, UNK
     Route: 048
     Dates: start: 20101103, end: 20101103
  7. CLOZARIL [Suspect]
     Dosage: 25 MG, UNK
     Route: 048
     Dates: start: 20101104, end: 20101106
  8. CLOZARIL [Suspect]
     Dosage: 50 MG, UNK
     Route: 048
     Dates: start: 20101107, end: 20101109
  9. CLOZARIL [Suspect]
     Dosage: 100 MG, UNK
     Route: 048
     Dates: start: 20101113, end: 20101114
  10. CLOZARIL [Suspect]
     Dosage: 300 MG, UNK
     Route: 048
     Dates: start: 20101201, end: 20101206
  11. CLOZARIL [Suspect]
     Dosage: 200 MG, UNK
     Route: 048
     Dates: start: 20101124, end: 20101130
  12. MAGMITT [Concomitant]
     Dosage: 2000 MG, UNK
     Route: 048
     Dates: start: 20101103
  13. CLOZARIL [Suspect]
     Dosage: 150 MG, UNK
     Route: 048
     Dates: start: 20101117, end: 20101118
  14. CLOZARIL [Suspect]
     Dosage: 125 MG, UNK
     Route: 048
     Dates: start: 20101115, end: 20101116
  15. ABILIFY [Concomitant]
     Indication: SCHIZOPHRENIA, UNDIFFERENTIATED TYPE
     Dosage: 12 MG, UNK
     Route: 048
     Dates: start: 20101224
  16. FLUNITRAZEPAM [Concomitant]
     Indication: SCHIZOPHRENIA
     Dosage: 1 MG, UNK
     Route: 048
     Dates: start: 20101103
  17. MAGNESIUM OXIDE [Concomitant]
     Indication: SCHIZOPHRENIA
     Dosage: 2000 MG, UNK
     Route: 048
     Dates: start: 20101103, end: 20110203
  18. TRIAZOLAM [Concomitant]
     Indication: SCHIZOPHRENIA
     Dosage: 0.25 MG, UNK
     Route: 048
     Dates: start: 20101216, end: 20110203

REACTIONS (8)
  - ASTHENIA [None]
  - ELECTROENCEPHALOGRAM ABNORMAL [None]
  - DIZZINESS [None]
  - DYSKINESIA [None]
  - MYOCLONUS [None]
  - FALL [None]
  - CONVULSION [None]
  - GAIT DISTURBANCE [None]
